FAERS Safety Report 9819953 (Version 1)
Quarter: 2013Q4

REPORT INFORMATION
  Report Type: Spontaneous
  Country: US (occurrence: None)
  Receive Date: 20131223
  Receipt Date: 20131223
  Transmission Date: 20140711
  Serious: No
  Sender: FDA-Public Use
  Company Number: 218403

PATIENT
  Age: 59 Year
  Sex: Female

DRUGS (3)
  1. PICATO (0.015%, GEL) [Suspect]
     Indication: SKIN CANCER
     Dosage: 1 IN 1 D, TOPICAL
     Route: 061
     Dates: start: 20120711, end: 20120713
  2. METFORMIN [Concomitant]
  3. COMPONDED BLEND OF THYROID [Concomitant]

REACTIONS (7)
  - Application site burn [None]
  - Application site erythema [None]
  - Skin exfoliation [None]
  - Application site exfoliation [None]
  - Application site dryness [None]
  - Off label use [None]
  - Drug administration error [None]
